FAERS Safety Report 6916902-8 (Version None)
Quarter: 2010Q3

REPORT INFORMATION
  Report Type: 
  Country: None (occurrence: None)
  Receive Date: 20100810
  Receipt Date: 20100730
  Transmission Date: 20110219
  Serious: Yes (Other)
  Sender: FDA-Public Use
  Company Number: B0668596A

PATIENT
  Age: 46 Year
  Sex: Male
  Weight: 105 kg

DRUGS (3)
  1. ALLI [Suspect]
     Dosage: 2CAP PER DAY
     Dates: start: 20100727, end: 20100727
  2. LEXOTAN [Concomitant]
     Dosage: 48MG PER DAY
     Route: 048
  3. QUETIAPINE [Concomitant]
     Dosage: 450MG PER DAY
     Route: 048

REACTIONS (3)
  - EYELID OEDEMA [None]
  - PRODUCT QUALITY ISSUE [None]
  - URINARY RETENTION [None]
